FAERS Safety Report 18472781 (Version 1)
Quarter: 2020Q4

REPORT INFORMATION
  Report Type: Spontaneous
  Country: US (occurrence: US)
  Receive Date: 20201106
  Receipt Date: 20201106
  Transmission Date: 20210114
  Serious: No
  Sender: FDA-Public Use
  Company Number: US-009507513-2011USA000782

PATIENT
  Age: 32 Year
  Sex: Female
  Weight: 49.89 kg

DRUGS (1)
  1. NEXPLANON [Suspect]
     Active Substance: ETONOGESTREL
     Indication: CONTRACEPTION
     Dosage: 1 IMPLANT IN LEFT ARM EVERY 3 YEARS
     Route: 065
     Dates: start: 20200914, end: 20201029

REACTIONS (5)
  - Implant site discharge [Recovering/Resolving]
  - Implant site bruising [Recovering/Resolving]
  - Implant site erythema [Recovering/Resolving]
  - Implant site infection [Recovering/Resolving]
  - Implant site pain [Recovering/Resolving]

NARRATIVE: CASE EVENT DATE: 2020
